FAERS Safety Report 7078800-1 (Version None)
Quarter: 2010Q4

REPORT INFORMATION
  Report Type: 
  Country: None (occurrence: None)
  Receive Date: 20101102
  Receipt Date: 20101028
  Transmission Date: 20110411
  Serious: Yes (Other)
  Sender: FDA-Public Use
  Company Number: US-PFIZER INC-2010137852

PATIENT
  Sex: Female
  Weight: 76.644 kg

DRUGS (12)
  1. TOVIAZ [Suspect]
     Indication: HYPERTONIC BLADDER
     Dosage: 8 MG, 1X/DAY
     Route: 048
     Dates: start: 20101027
  2. ISOSORBIDE [Concomitant]
     Indication: CARDIAC DISORDER
     Dosage: 60 MG, 1X/DAY
     Route: 048
  3. DILTIAZEM [Concomitant]
     Indication: CARDIAC DISORDER
     Dosage: 180 MG, 1X/DAY
     Route: 048
  4. VALSARTAN [Concomitant]
     Indication: CARDIAC DISORDER
     Dosage: 160 MG, 1X/DAY
     Route: 048
  5. ACETYLSALICYLIC ACID [Concomitant]
     Indication: CARDIAC DISORDER
     Dosage: 81 MG, 1X/DAY
     Route: 048
  6. ZOLOFT [Concomitant]
     Indication: DEPRESSION
     Dosage: 50 MG, 1X/DAY
     Route: 048
     Dates: start: 20101001
  7. XANAX [Concomitant]
     Indication: NERVOUS SYSTEM DISORDER
     Dosage: 5 MG, 2X/DAY
     Route: 048
  8. NEXIUM [Concomitant]
     Indication: GASTRIC DISORDER
     Dosage: 40 MG, 2X/DAY
     Route: 048
  9. SUCRALFATE [Concomitant]
     Indication: GASTRIC DISORDER
     Dosage: 1 G, 3X/DAY
     Route: 048
  10. ADVAIR DISKUS 100/50 [Concomitant]
     Indication: CHRONIC OBSTRUCTIVE PULMONARY DISEASE
     Dosage: 500/50, 2X/DAY
  11. SPIRIVA [Concomitant]
     Indication: CHRONIC OBSTRUCTIVE PULMONARY DISEASE
     Dosage: UNK, 1X/DAY
  12. ALBUTEROL SULFATE [Concomitant]
     Indication: CHRONIC OBSTRUCTIVE PULMONARY DISEASE
     Dosage: UNK, 3X/DAY

REACTIONS (1)
  - POLLAKIURIA [None]
